FAERS Safety Report 6328605-1 (Version None)
Quarter: 2009Q3

REPORT INFORMATION
  Report Type: 
  Country: None (occurrence: None)
  Receive Date: 20090824
  Receipt Date: 20090824
  Transmission Date: 20100115
  Serious: Yes (Other)
  Sender: FDA-Public Use
  Company Number: None

PATIENT
  Sex: Male
  Weight: 127.3 kg

DRUGS (6)
  1. LEVAQUIN [Suspect]
     Indication: BRONCHITIS
     Dosage: 750MG 1X/DAY ORAL 047
     Route: 048
     Dates: start: 20090817, end: 20090822
  2. LEVAQUIN [Suspect]
     Indication: SINUSITIS
     Dosage: 750MG 1X/DAY ORAL 047
     Route: 048
     Dates: start: 20090817, end: 20090822
  3. DIOVAN HCT [Concomitant]
  4. CITALOPRAM HYDROBROMIDE [Concomitant]
  5. CENTRUM OTC MULTIVITAMIN [Concomitant]
  6. AMOXICILLIN TABLET [Concomitant]

REACTIONS (4)
  - ANXIETY [None]
  - HYPERHIDROSIS [None]
  - NEUROPATHY PERIPHERAL [None]
  - TREMOR [None]
